FAERS Safety Report 21898985 (Version 1)
Quarter: 2023Q1

REPORT INFORMATION
  Report Type: Spontaneous
  Country: GB (occurrence: GB)
  Receive Date: 20230123
  Receipt Date: 20230123
  Transmission Date: 20230418
  Serious: Yes (Other)
  Sender: FDA-Public Use
  Company Number: GB-MHRA-MED-202212021009520870-VJHSY

PATIENT
  Age: 64 Year
  Sex: Male
  Weight: 70 kg

DRUGS (4)
  1. LEVOFLOXACIN [Suspect]
     Active Substance: LEVOFLOXACIN
     Indication: Pneumonia
     Dosage: 500 MILLIGRAM, BID (500MG TWICE A DAY)
     Route: 065
     Dates: start: 20221115
  2. ACITRETIN [Concomitant]
     Active Substance: ACITRETIN
     Indication: Skin cancer
     Dosage: UNK
     Route: 065
     Dates: start: 20201101
  3. FLUCONAZOLE [Concomitant]
     Active Substance: FLUCONAZOLE
     Indication: Pneumonia
     Dosage: 200 MILLIGRAM, QD (OVER 10 DAYS)
     Route: 065
     Dates: start: 20221114, end: 20221124
  4. FOLIC ACID [Concomitant]
     Active Substance: FOLIC ACID
     Indication: Red blood cell count abnormal
     Dosage: UNK
     Route: 065
     Dates: start: 20220801

REACTIONS (5)
  - Joint swelling [Unknown]
  - Tendon pain [Recovering/Resolving]
  - Oral candidiasis [Recovering/Resolving]
  - Arthralgia [Unknown]
  - Tendon rupture [Unknown]

NARRATIVE: CASE EVENT DATE: 20221118
